FAERS Safety Report 5623934-9 (Version None)
Quarter: 2008Q1

REPORT INFORMATION
  Report Type: 
  Country: None (occurrence: None)
  Receive Date: 20080207
  Receipt Date: 20080131
  Transmission Date: 20080703
  Serious: Yes (Hospitalization)
  Sender: FDA-Public Use
  Company Number: 2008-00584

PATIENT
  Age: 41 Year
  Sex: Female

DRUGS (3)
  1. FLUOROURACIL [Suspect]
     Indication: CHEMOTHERAPY
     Dosage: 600 MG/M2, Q 3 WEEKS
     Dates: start: 20060901
  2. EPIRUBICIN [Suspect]
     Indication: CHEMOTHERAPY
     Dosage: 90 MG/M2, Q 3 WEEKS
     Dates: start: 20060901
  3. CYCLOPHOSPHAMIDE [Suspect]
     Indication: CHEMOTHERAPY
     Dosage: 600 MG/M2, Q 3 WEEKS
     Dates: start: 20060901

REACTIONS (1)
  - MANIA [None]
